FAERS Safety Report 8900598 (Version 3)
Quarter: 2012Q4

REPORT INFORMATION
  Report Type: 
  Country: US (occurrence: US)
  Receive Date: 20121109
  Receipt Date: 20121210
  Transmission Date: 20130627
  Serious: Yes (Hospitalization, Other)
  Sender: FDA-Public Use
  Company Number: US-MERCK-1210USA006733

PATIENT
  Age: 60 None
  Sex: Male

DRUGS (4)
  1. PEGINTRON [Suspect]
     Indication: HEPATITIS C
     Dosage: UNK
     Route: 059
     Dates: start: 20121012, end: 20121016
  2. PEGINTRON [Suspect]
     Dosage: UNK, Unknown
     Dates: start: 20121106, end: 20121127
  3. RIBAVIRIN [Suspect]
     Indication: HEPATITIS C
     Dosage: UNK
     Route: 048
     Dates: start: 20121012, end: 20121016
  4. RIBAVIRIN [Suspect]
     Dosage: UNK
     Dates: start: 20121116, end: 20121127

REACTIONS (18)
  - Diverticulitis [Unknown]
  - Abscess intestinal [Unknown]
  - Feeling hot [Unknown]
  - Pain [Unknown]
  - Vomiting [Unknown]
  - Vomiting [Unknown]
  - Headache [Unknown]
  - Dyspnoea [Unknown]
  - Anxiety [Unknown]
  - Nausea [Unknown]
  - Chills [Unknown]
  - Pyrexia [Unknown]
  - Malaise [Unknown]
  - Dyspnoea [Unknown]
  - Chills [Unknown]
  - Abdominal pain upper [Unknown]
  - Fatigue [Unknown]
  - Abdominal pain [Unknown]
